FAERS Safety Report 26096123 (Version 1)
Quarter: 2025Q4

REPORT INFORMATION
  Report Type: Spontaneous
  Country: US (occurrence: None)
  Receive Date: 20251127
  Receipt Date: 20251127
  Transmission Date: 20260118
  Serious: Yes (Hospitalization)
  Sender: APOTEX
  Company Number: US-APOTEX-2025AP033101

PATIENT
  Sex: Female

DRUGS (2)
  1. LITHIUM [Suspect]
     Active Substance: LITHIUM
     Indication: Post-traumatic stress disorder
     Dosage: UNK
     Route: 065
  2. TIRZEPATIDE [Suspect]
     Active Substance: TIRZEPATIDE
     Indication: Weight abnormal
     Dosage: UNK
     Route: 065

REACTIONS (4)
  - Mental status changes [Recovering/Resolving]
  - Tachycardia [Recovering/Resolving]
  - Electrolyte imbalance [Recovering/Resolving]
  - Toxicity to various agents [Recovering/Resolving]
